FAERS Safety Report 6014492-8 (Version None)
Quarter: 2008Q4

REPORT INFORMATION
  Report Type: 
  Country: None (occurrence: None)
  Receive Date: 20081219
  Receipt Date: 20080718
  Transmission Date: 20090506
  Serious: No
  Sender: FDA-Public Use
  Company Number: A0738429A

PATIENT
  Age: 76 Year
  Sex: Male

DRUGS (6)
  1. AVODART [Suspect]
     Indication: NOCTURIA
     Dosage: 1CAP PER DAY
     Route: 048
     Dates: start: 20080601
  2. CARDURA [Concomitant]
  3. MONOPRIL [Concomitant]
  4. LEVOTHYROXINE SODIUM [Concomitant]
  5. ALBUTEROL [Concomitant]
  6. FLOVENT [Concomitant]

REACTIONS (3)
  - DEFAECATION URGENCY [None]
  - INTRA-ABDOMINAL PRESSURE INCREASED [None]
  - POLLAKIURIA [None]
